FAERS Safety Report 16724522 (Version 2)
Quarter: 2019Q3

REPORT INFORMATION
  Report Type: Spontaneous
  Country: US (occurrence: US)
  Receive Date: 20190821
  Receipt Date: 20190830
  Transmission Date: 20191005
  Serious: Yes (Death, Hospitalization, Other)
  Sender: FDA-Public Use
  Company Number: US-UNITED THERAPEUTICS-UNT-2019-013730

PATIENT
  Age: 56 Year
  Sex: Male
  Weight: 64.4 kg

DRUGS (1)
  1. REMODULIN [Suspect]
     Active Substance: TREPROSTINIL
     Indication: PULMONARY ARTERIAL HYPERTENSION
     Dosage: 0.044 ?G/KG, CONTINUING
     Route: 058
     Dates: start: 20190515

REACTIONS (5)
  - Death [Fatal]
  - Gastrointestinal haemorrhage [Unknown]
  - Renal disorder [Unknown]
  - Hepatic cancer [Unknown]
  - Hepatic failure [Unknown]

NARRATIVE: CASE EVENT DATE: 2019
